FAERS Safety Report 8275859-0 (Version None)
Quarter: 2012Q2

REPORT INFORMATION
  Report Type: 
  Country: None (occurrence: None)
  Receive Date: 20120410
  Receipt Date: 20120410
  Transmission Date: 20120825
  Serious: Yes (Life-Threatening, Hospitalization)
  Sender: FDA-Public Use
  Company Number: None

PATIENT
  Age: 72 Year
  Sex: Male
  Weight: 84 kg

DRUGS (6)
  1. LISINOPRIL [Concomitant]
  2. DILTIAZEM [Concomitant]
  3. FENOFIBRATE [Concomitant]
  4. DABIGATRAN 150MG BOEHRINGER-INGELHEIM [Suspect]
     Indication: ATRIAL FIBRILLATION
     Dosage: DABIGATRAN 150MG BID PO
     Route: 048
     Dates: start: 20110901, end: 20120401
  5. VIAGRA [Concomitant]
  6. BALSALAZIDE DISODIUM [Concomitant]

REACTIONS (2)
  - HAEMORRHAGE INTRACRANIAL [None]
  - CONTINUOUS HAEMODIAFILTRATION [None]
